FAERS Safety Report 6813151-9 (Version None)
Quarter: 2010Q3

REPORT INFORMATION
  Report Type: 
  Country: None (occurrence: None)
  Receive Date: 20100701
  Receipt Date: 20100625
  Transmission Date: 20110219
  Serious: Yes (Other)
  Sender: FDA-Public Use
  Company Number: CN-PFIZER INC-2010079374

PATIENT
  Sex: Male

DRUGS (1)
  1. MEDROL [Suspect]
     Indication: SYSTEMIC LUPUS ERYTHEMATOSUS
     Dosage: 48 MG, 1X/DAY
     Route: 048
     Dates: start: 20100101

REACTIONS (1)
  - HERPES ZOSTER [None]
